FAERS Safety Report 8880221 (Version 1)
Quarter: 2012Q4

REPORT INFORMATION
  Report Type: 
  Country: DE (occurrence: DE)
  Receive Date: 20121031
  Receipt Date: 20121031
  Transmission Date: 20130627
  Serious: Yes (Life-Threatening, Hospitalization)
  Sender: FDA-Public Use
  Company Number: DE-ASTRAZENECA-2012SE82137

PATIENT
  Age: 34 Year
  Sex: Female

DRUGS (2)
  1. BRILIQUE [Suspect]
     Indication: ACUTE MYOCARDIAL INFARCTION
     Route: 048
  2. CONTRACEPTIVE MEDICATION [Concomitant]

REACTIONS (3)
  - Fall [Unknown]
  - Intra-abdominal haemorrhage [Recovered/Resolved]
  - Subcutaneous haematoma [Recovered/Resolved]
